FAERS Safety Report 9526297 (Version 1)
Quarter: 2013Q3

REPORT INFORMATION
  Report Type: Spontaneous
  Country: US (occurrence: US)
  Receive Date: 20130916
  Receipt Date: 20130916
  Transmission Date: 20140515
  Serious: No
  Sender: FDA-Public Use
  Company Number: US-009507513-1309USA006795

PATIENT
  Sex: Female

DRUGS (1)
  1. MIRALAX [Suspect]
     Indication: CONSTIPATION
     Dosage: 1 TBSP, ONCE
     Route: 048
     Dates: start: 20130828

REACTIONS (2)
  - Drug effect decreased [Unknown]
  - Prescribed underdose [Unknown]
